FAERS Safety Report 10515780 (Version 1)
Quarter: 2014Q4

REPORT INFORMATION
  Report Type: Spontaneous
  Country: US (occurrence: None)
  Receive Date: 20141001
  Receipt Date: 20141001
  Transmission Date: 20150528
  Serious: Yes (Other)
  Sender: FDA-Public Use
  Company Number: 117681

PATIENT
  Age: 48 Year
  Sex: Male
  Weight: 68 kg

DRUGS (6)
  1. ZONEGRAN (ZONISAMIDE) [Concomitant]
  2. KEPPRA XR [Suspect]
     Active Substance: LEVETIRACETAM
     Dosage: 2X/DAY
     Route: 048
     Dates: start: 201402
  3. PHENOBARBITAL (PHENOBARBITAL SODIUM) [Concomitant]
  4. ASACOL (MESALAZINE) [Concomitant]
  5. KEPPRA [Suspect]
     Active Substance: LEVETIRACETAM
     Dates: end: 201402
  6. VIMPAT [Suspect]
     Active Substance: LACOSAMIDE
     Indication: CONVULSION PROPHYLAXIS
     Dosage: 2X/DAY
     Dates: start: 201401, end: 201405

REACTIONS (3)
  - Seizure [None]
  - Fatigue [None]
  - Inappropriate schedule of drug administration [None]

NARRATIVE: CASE EVENT DATE: 201402
